FAERS Safety Report 4455763-6 (Version None)
Quarter: 2004Q3

REPORT INFORMATION
  Report Type: 
  Country: None (occurrence: None)
  Receive Date: 20040920
  Receipt Date: 20040907
  Transmission Date: 20050211
  Serious: Yes (Death, Hospitalization)
  Sender: FDA-Public Use
  Company Number: 04P-163-0272446-00

PATIENT
  Age: 79 Year
  Sex: Male

DRUGS (1)
  1. HUMIRA [Suspect]
     Indication: RHEUMATOID ARTHRITIS
     Dosage: 40 MG, 1 IN 1 WK, SUBCUTANEOUS
     Route: 058
     Dates: start: 20030701, end: 20040811

REACTIONS (5)
  - CONFUSIONAL STATE [None]
  - JOINT SWELLING [None]
  - OXYGEN SATURATION DECREASED [None]
  - SEPSIS [None]
  - STAPHYLOCOCCAL INFECTION [None]
